FAERS Safety Report 16048830 (Version 1)
Quarter: 2019Q1

REPORT INFORMATION
  Report Type: Report from Study
  Country: US (occurrence: US)
  Receive Date: 20190307
  Receipt Date: 20190307
  Transmission Date: 20190418
  Serious: Yes (Other)
  Sender: FDA-Public Use
  Company Number: US-MALLINCKRODT-T201902066

PATIENT
  Age: 9 Month
  Sex: Male
  Weight: 9 kg

DRUGS (1)
  1. REPOSITORY CORTICOTROPIN INJECTION [Suspect]
     Active Substance: CORTICOTROPIN
     Indication: INFANTILE SPASMS
     Dosage: 40 UNITS IN THE AM AND 80 UNITS IN THE EVENING (TWICE DAILY)
     Route: 030
     Dates: start: 20190204

REACTIONS (5)
  - Contusion [Unknown]
  - Skin atrophy [Unknown]
  - Flushing [Unknown]
  - Musculoskeletal stiffness [Unknown]
  - Areflexia [Unknown]

NARRATIVE: CASE EVENT DATE: 201902
